FAERS Safety Report 16237775 (Version 1)
Quarter: 2019Q2

REPORT INFORMATION
  Report Type: Spontaneous
  Country: BR (occurrence: BR)
  Receive Date: 20190425
  Receipt Date: 20190425
  Transmission Date: 20190711
  Serious: Yes (Hospitalization)
  Sender: FDA-Public Use
  Company Number: BR-US WORLDMEDS, LLC-USW201904-000785

PATIENT
  Sex: Female
  Weight: 47 kg

DRUGS (2)
  1. ZELNORM [Suspect]
     Active Substance: TEGASEROD MALEATE
     Indication: CONSTIPATION
     Route: 048
     Dates: start: 2010
  2. ZELNORM [Suspect]
     Active Substance: TEGASEROD MALEATE
     Route: 048

REACTIONS (3)
  - Constipation [Recovered/Resolved]
  - Condition aggravated [Unknown]
  - Irritable bowel syndrome [Recovered/Resolved]

NARRATIVE: CASE EVENT DATE: 2015
